FAERS Safety Report 5636947-8 (Version None)
Quarter: 2008Q1

REPORT INFORMATION
  Report Type: 
  Country: None (occurrence: None)
  Receive Date: 20080225
  Receipt Date: 20070122
  Transmission Date: 20080703
  Serious: No
  Sender: FDA-Public Use
  Company Number: US-BRISTOL-MYERS SQUIBB COMPANY-13651575

PATIENT
  Age: 55 Year
  Sex: Male
  Weight: 127 kg

DRUGS (3)
  1. GLUCOPHAGE [Suspect]
  2. AVANDIA [Suspect]
  3. BYETTA [Concomitant]
     Indication: TYPE 2 DIABETES MELLITUS
     Route: 058
     Dates: start: 20060505

REACTIONS (1)
  - MALAISE [None]
